FAERS Safety Report 10655170 (Version 1)
Quarter: 2014Q4

REPORT INFORMATION
  Report Type: Spontaneous
  Country: US (occurrence: None)
  Receive Date: 20141215
  Receipt Date: 20141215
  Transmission Date: 20150529
  Serious: Yes (Hospitalization, Disabling)
  Sender: FDA-Public Use
  Company Number: None

PATIENT
  Age: 75 Year
  Sex: Female
  Weight: 117.94 kg

DRUGS (1)
  1. LEVOTHYROXINE [Suspect]
     Active Substance: LEVOTHYROXINE
     Indication: THYROID DISORDER
     Dosage: ONE PILL
     Route: 048
     Dates: start: 2010, end: 20141127

REACTIONS (5)
  - Immobile [None]
  - Bone neoplasm [None]
  - Asthenia [None]
  - Joint arthroplasty [None]
  - Product substitution issue [None]

NARRATIVE: CASE EVENT DATE: 20141124
